FAERS Safety Report 25860458 (Version 4)
Quarter: 2025Q4

REPORT INFORMATION
  Report Type: Spontaneous
  Country: US (occurrence: US)
  Receive Date: 20250929
  Receipt Date: 20251030
  Transmission Date: 20260118
  Serious: Yes (Other)
  Sender: PFIZER
  Company Number: US-PFIZER INC-202500192273

PATIENT
  Age: 39 Year
  Sex: Female
  Weight: 52 kg

DRUGS (2)
  1. METHOTREXATE [Suspect]
     Active Substance: METHOTREXATE
     Indication: Arthritis
     Dosage: 25 MG
     Dates: start: 2018, end: 2019
  2. METHOTREXATE [Suspect]
     Active Substance: METHOTREXATE
     Indication: Mixed connective tissue disease
     Dosage: 10 MG, WEEKLY, TITRATED TO 25 MG OVER YEAR: 1 YEAR DURATION
     Route: 048
     Dates: start: 2018, end: 2019

REACTIONS (4)
  - Interstitial lung disease [Unknown]
  - Idiopathic interstitial pneumonia [Unknown]
  - Scleroderma [Unknown]
  - Antisynthetase syndrome [Unknown]

NARRATIVE: CASE EVENT DATE: 20190101
